FAERS Safety Report 23830507 (Version 1)
Quarter: 2024Q2

REPORT INFORMATION
  Report Type: Spontaneous
  Country: US (occurrence: None)
  Receive Date: 20240507
  Receipt Date: 20240507
  Transmission Date: 20240716
  Serious: No
  Sender: FDA-Public Use
  Company Number: None

PATIENT
  Age: 63 Year
  Sex: Male
  Weight: 90.72 kg

DRUGS (9)
  1. REPATHA [Suspect]
     Active Substance: EVOLOCUMAB
  2. REPATHA [Concomitant]
     Active Substance: EVOLOCUMAB
  3. NEXLIZET [Concomitant]
     Active Substance: BEMPEDOIC ACID\EZETIMIBE
  4. FISH OIL [Concomitant]
     Active Substance: FISH OIL
  5. MULTI-VITAMIN [Concomitant]
     Active Substance: .ALPHA.-TOCOPHEROL ACETATE, DL-\ASCORBIC ACID\CYANOCOBALAMIN\FLUORIDE ION\FOLIC ACID\NIACIN\PYRIDOXI
  6. COENZYME Q10 [Concomitant]
     Active Substance: DIETARY SUPPLEMENT\UBIDECARENONE
  7. DIETARY SUPPLEMENT [Concomitant]
     Active Substance: DIETARY SUPPLEMENT
  8. ASPIRIN [Concomitant]
     Active Substance: ASPIRIN
  9. VITAMINS [Concomitant]
     Active Substance: VITAMINS

REACTIONS (4)
  - Injection site pain [None]
  - Pain [None]
  - Electric shock sensation [None]
  - Pain in extremity [None]

NARRATIVE: CASE EVENT DATE: 20240428
